FAERS Safety Report 7226859-0 (Version None)
Quarter: 2011Q1

REPORT INFORMATION
  Report Type: 
  Country: None (occurrence: None)
  Receive Date: 20110114
  Receipt Date: 20101115
  Transmission Date: 20110831
  Serious: Yes (Hospitalization, Other)
  Sender: FDA-Public Use
  Company Number: US-BAYER-201031413NA

PATIENT
  Weight: 74.83 kg

DRUGS (12)
  1. METFORMIN HCL [Concomitant]
     Indication: GLUCOSE TOLERANCE IMPAIRED
     Dosage: UNK
     Dates: start: 20080413, end: 20081001
  2. METFORMIN HCL [Concomitant]
     Indication: INSULIN RESISTANCE
  3. YASMIN [Suspect]
     Indication: CONTRACEPTION
     Dosage: UNK UNK, UNK
     Route: 048
     Dates: start: 20080330, end: 20080722
  4. YASMIN [Suspect]
     Indication: POLYCYSTIC OVARIES
  5. MAGNESIUM [MAGNESIUM] [Concomitant]
     Dosage: UNK
     Dates: start: 20080901, end: 20081101
  6. IBUPROFEN [Concomitant]
     Dosage: UNK UNK, PRN
  7. OCELLA [Suspect]
     Indication: CONTRACEPTION
     Route: 048
     Dates: start: 20080722, end: 20081118
  8. VITAMIN E [Concomitant]
     Dosage: UNK
     Dates: start: 20080901, end: 20081101
  9. HERBAL PREPARATION [Concomitant]
     Dosage: UNK
     Dates: start: 20010101
  10. ASCORBIC ACID [Concomitant]
     Dosage: UNK
     Dates: start: 20010101
  11. VITAMIN B [Concomitant]
     Dosage: UNK
     Dates: start: 20080901, end: 20081101
  12. OCELLA [Suspect]
     Indication: POLYCYSTIC OVARIES

REACTIONS (3)
  - ABDOMINAL PAIN UPPER [None]
  - CHOLELITHIASIS [None]
  - CHOLECYSTITIS CHRONIC [None]
